FAERS Safety Report 13108941 (Version 1)
Quarter: 2017Q1

REPORT INFORMATION
  Report Type: Spontaneous
  Country: US (occurrence: US)
  Receive Date: 20170112
  Receipt Date: 20170112
  Transmission Date: 20170428
  Serious: Yes (Hospitalization)
  Sender: FDA-Public Use
  Company Number: None

PATIENT
  Age: 70 Year
  Sex: Female
  Weight: 64.1 kg

DRUGS (4)
  1. RADIATION THERAPY [Concomitant]
     Active Substance: RADIATION THERAPY
  2. OPTUNE DEVICE [Concomitant]
  3. BEVACIZUMAB [Concomitant]
     Active Substance: BEVACIZUMAB
  4. TEMODAR [Suspect]
     Active Substance: TEMOZOLOMIDE
     Indication: GLIOBLASTOMA MULTIFORME
     Dosage: DAILYX5 DOSES/28D
     Route: 048
     Dates: start: 20161205, end: 20161209

REACTIONS (5)
  - Headache [None]
  - Pneumonia [None]
  - Productive cough [None]
  - Cerebral haemorrhage [None]
  - Dyspnoea [None]

NARRATIVE: CASE EVENT DATE: 20161211
